FAERS Safety Report 20746898 (Version 1)
Quarter: 2022Q2

REPORT INFORMATION
  Report Type: Report from Study
  Country: GB (occurrence: GB)
  Receive Date: 20220425
  Receipt Date: 20220425
  Transmission Date: 20220721
  Serious: Yes (Hospitalization)
  Sender: FDA-Public Use
  Company Number: GB-ROCHE-2225270

PATIENT
  Age: 43 Year
  Sex: Female

DRUGS (22)
  1. DOCETAXEL [Suspect]
     Active Substance: DOCETAXEL
     Indication: Breast cancer metastatic
     Dosage: 148 MG, FREQUENCY TIME 3 WEEKS, DURATION- 85 DAYS
     Route: 042
     Dates: start: 20171108, end: 20180131
  2. PERTUZUMAB [Suspect]
     Active Substance: PERTUZUMAB
     Indication: Breast cancer metastatic
     Dosage: 420 MG, FREQUENCY TIME- 1 WEEK, DURATION-4 YEARS
     Route: 042
     Dates: start: 20171129, end: 20210924
  3. PERTUZUMAB [Suspect]
     Active Substance: PERTUZUMAB
     Dosage: 840 MG, FREQUENCY TIME- 3 WEEK, DURATION-22 DAYS
     Route: 042
     Dates: start: 20171108, end: 20171129
  4. PERTUZUMAB [Suspect]
     Active Substance: PERTUZUMAB
     Dosage: 600 MG, FREQUENCY TIME- 3 WEEK,
     Route: 058
     Dates: start: 20211015
  5. PERTUZUMAB [Suspect]
     Active Substance: PERTUZUMAB
     Dosage: 840 MG, FREQUENCY TIME- 3 WEEK,
     Route: 042
     Dates: start: 20181120
  6. TRASTUZUMAB [Suspect]
     Active Substance: TRASTUZUMAB
     Indication: Breast cancer metastatic
     Dosage: 600 MG, FREQUENCY TIME- 3 WEEK,
     Route: 058
     Dates: start: 20211015
  7. TRASTUZUMAB [Suspect]
     Active Substance: TRASTUZUMAB
     Indication: Breast cancer metastatic
     Dosage: 651 MG, FREQUENCY TIME- 3 WEEK, DURATION-4 YEARS
     Route: 042
     Dates: start: 20171129, end: 20210903
  8. TRASTUZUMAB [Suspect]
     Active Substance: TRASTUZUMAB
     Dosage: 882 MG, DURATION-22 DAYS
     Route: 042
     Dates: start: 20171108, end: 20171129
  9. BECLOMETHASONE DIPROPIONATE [Concomitant]
     Active Substance: BECLOMETHASONE DIPROPIONATE
     Dosage: 2 PUFF, FREQUENCY TIME- 1 DAY
     Route: 055
  10. CLONAZEPAM [Concomitant]
     Active Substance: CLONAZEPAM
     Dosage: 250 MILLIGRAM DAILY;
     Route: 048
  11. ERYTHROMYCIN [Concomitant]
     Active Substance: ERYTHROMYCIN
     Dosage: 2000 MILLIGRAM DAILY; UNIT DOSE: 500 MG, FREQUENCY TIME- 1 DAY, DURATION-183 DAYS
     Route: 048
     Dates: start: 2020, end: 202007
  12. LACTULOSE [Concomitant]
     Active Substance: LACTULOSE
     Dosage: 20 ML DAILY;
     Route: 048
  13. OMEPRAZOLE [Concomitant]
     Active Substance: OMEPRAZOLE
     Dosage: 40 MILLIGRAM DAILY;
     Route: 048
     Dates: start: 201710
  14. ONDANSETRON [Concomitant]
     Active Substance: ONDANSETRON
     Indication: Diarrhoea
     Dosage: 4 MG, DURATION 2 DAYS
     Route: 042
     Dates: start: 20181001, end: 20181002
  15. OXYCODONE [Concomitant]
     Active Substance: OXYCODONE
     Dosage: 220 MILLIGRAM DAILY;
     Route: 048
  16. QUETIAPINE [Concomitant]
     Active Substance: QUETIAPINE
     Dosage: 100 MILLIGRAM DAILY;
     Route: 048
     Dates: end: 2020
  17. QUETIAPINE [Concomitant]
     Active Substance: QUETIAPINE
     Dosage: 150 MILLIGRAM DAILY;
     Route: 048
     Dates: start: 2020
  18. RAMIPRIL [Concomitant]
     Active Substance: RAMIPRIL
     Dosage: 1.25 MILLIGRAM DAILY;
     Route: 048
  19. ALBUTEROL [Concomitant]
     Active Substance: ALBUTEROL
     Dosage: 2 PUFF, FREQUENCY TIME: 1 AS REQUIRED
     Route: 055
  20. SIMVASTATIN [Concomitant]
     Active Substance: SIMVASTATIN
     Dosage: 40 MILLIGRAM DAILY;
     Route: 048
  21. SODIUM PICOSULFATE [Concomitant]
     Active Substance: SODIUM PICOSULFATE
     Dosage: FREQUENCY TIME- 1 DAY
     Route: 048
  22. VANCOMYCIN [Concomitant]
     Active Substance: VANCOMYCIN
     Dosage: 3500 MILLIGRAM DAILY;
     Route: 042
     Dates: start: 20200612, end: 202006

REACTIONS (4)
  - Urinary tract infection [Recovered/Resolved]
  - Headache [Recovered/Resolved]
  - Dizziness [Recovered/Resolved]
  - Back pain [Recovered/Resolved with Sequelae]

NARRATIVE: CASE EVENT DATE: 20181101
